FAERS Safety Report 13550158 (Version 2)
Quarter: 2017Q2

REPORT INFORMATION
  Report Type: Spontaneous
  Country: FR (occurrence: FR)
  Receive Date: 20170516
  Receipt Date: 20170530
  Transmission Date: 20170830
  Serious: Yes (Death, Hospitalization, Other)
  Sender: FDA-Public Use
  Company Number: FR-ACTELION-A-CH2017-153829

PATIENT
  Age: 12 Year
  Sex: Female
  Weight: 38 kg

DRUGS (5)
  1. ZAVESCA [Suspect]
     Active Substance: MIGLUSTAT
     Indication: NIEMANN-PICK DISEASE
     Dosage: 200 MG, BID
     Route: 048
     Dates: start: 20130312, end: 2016
  2. MOVICOL [Concomitant]
     Active Substance: POLYETHYLENE GLYCOL 3350\POTASSIUM CHLORIDE\SODIUM BICARBONATE\SODIUM CHLORIDE
     Indication: CONSTIPATION
     Dosage: 1 SACHET, TID
     Route: 048
     Dates: start: 20160114
  3. ZONEGRAN [Concomitant]
     Active Substance: ZONISAMIDE
     Indication: EPILEPSY
     Dosage: 75 MG, QD
     Route: 048
     Dates: start: 201510
  4. URBANYL [Concomitant]
     Active Substance: CLOBAZAM
     Indication: EPILEPSY
     Dosage: 10 MG, BID
     Route: 048
     Dates: start: 201211
  5. MICROPAKINE [Concomitant]
     Active Substance: VALPROIC ACID
     Indication: EPILEPSY
     Dosage: 400 MG, BID
     Route: 048
     Dates: start: 201301

REACTIONS (19)
  - Multiple organ dysfunction syndrome [Fatal]
  - Cough [Fatal]
  - Anuria [Fatal]
  - Respiratory arrest [Fatal]
  - Asthma [Fatal]
  - Respiratory failure [Fatal]
  - Pyrexia [Fatal]
  - Inflammation [Fatal]
  - Platelet transfusion [Unknown]
  - Mydriasis [Fatal]
  - Areflexia [Fatal]
  - Pneumonitis [Fatal]
  - Epistaxis [Unknown]
  - Nasal congestion [Fatal]
  - General physical health deterioration [Fatal]
  - Coagulopathy [Unknown]
  - Pneumonia aspiration [Fatal]
  - Thrombocytopenia [Unknown]
  - Decreased appetite [Fatal]

NARRATIVE: CASE EVENT DATE: 2016
